FAERS Safety Report 10400758 (Version 2)
Quarter: 2014Q3

REPORT INFORMATION
  Report Type: Spontaneous
  Country: GB (occurrence: GB)
  Receive Date: 20140821
  Receipt Date: 20140821
  Transmission Date: 20150326
  Serious: Yes (Hospitalization)
  Sender: FDA-Public Use
  Company Number: GB-009507513-1312GBR002910

PATIENT
  Age: 18 Year
  Sex: Female

DRUGS (4)
  1. LACTULOSE + SEMA [Concomitant]
     Route: 048
  2. FOLIC ACID. [Concomitant]
     Active Substance: FOLIC ACID
     Dosage: 400 MICROGRAM, QD
     Route: 048
     Dates: start: 20131202, end: 20131230
  3. PROPECIA [Suspect]
     Active Substance: FINASTERIDE
     Dosage: UNK
  4. TRIMETHOPRIM. [Concomitant]
     Active Substance: TRIMETHOPRIM
     Dosage: UNK, BID
     Route: 048
     Dates: start: 20140214

REACTIONS (2)
  - Exposure via father [Unknown]
  - Urosepsis [Unknown]

NARRATIVE: CASE EVENT DATE: 20140220
